FAERS Safety Report 9639196 (Version 1)
Quarter: 2013Q4

REPORT INFORMATION
  Report Type: Spontaneous
  Country: US (occurrence: None)
  Receive Date: 20131021
  Receipt Date: 20131021
  Transmission Date: 20140711
  Serious: Yes (Death)
  Sender: FDA-Public Use
  Company Number: 2013AP008599

PATIENT
  Age: 42 Year
  Sex: Male

DRUGS (1)
  1. LITHIUM CARBONATE CAPSULES [Suspect]
     Route: 048

REACTIONS (3)
  - Suicide attempt [None]
  - Intentional drug misuse [None]
  - Medication error [None]
